FAERS Safety Report 10477423 (Version 2)
Quarter: 2015Q1

REPORT INFORMATION
  Report Type: Spontaneous
  Country: US (occurrence: US)
  Receive Date: 20140926
  Receipt Date: 20150105
  Transmission Date: 20150720
  Serious: No
  Sender: FDA-Public Use
  Company Number: US-ASTRAZENECA-2014SE69340

PATIENT
  Age: 82 Year
  Sex: Female
  Weight: 63.5 kg

DRUGS (7)
  1. ARED-2 [Concomitant]
     Dosage: UNKNOWN NR
  2. OCCUVITE [Concomitant]
     Indication: EYE DISORDER
     Dosage: UNKNOWN NR
  3. BABY ASPIRIN [Concomitant]
     Active Substance: ASPIRIN
     Dosage: UNKNOWN HS
  4. SYMBICORT [Suspect]
     Active Substance: BUDESONIDE\FORMOTEROL FUMARATE DIHYDRATE
     Indication: ASTHMA
     Dosage: 160 MCG/ 4.5 MCG; 2 PUFFS, DAILY
     Route: 055
  5. LISINOPRIL. [Suspect]
     Active Substance: LISINOPRIL
     Indication: HYPERTENSION
     Route: 048
     Dates: start: 2009
  6. FISH OIL [Concomitant]
     Active Substance: FISH OIL
     Indication: SUPPLEMENTATION THERAPY
     Dosage: UNKNOWN PRN
  7. CALCIUM [Concomitant]
     Active Substance: CALCIUM
     Indication: SUPPLEMENTATION THERAPY
     Dosage: UNKNOWN NR

REACTIONS (5)
  - Macular degeneration [Unknown]
  - Intentional product misuse [Unknown]
  - Dry eye [Unknown]
  - Off label use [Unknown]
  - Retinal ischaemia [Unknown]
